FAERS Safety Report 21242053 (Version 1)
Quarter: 2022Q3

REPORT INFORMATION
  Report Type: Spontaneous
  Country: US (occurrence: US)
  Receive Date: 20220823
  Receipt Date: 20220823
  Transmission Date: 20221027
  Serious: No
  Sender: FDA-Public Use
  Company Number: US-009507513-2208USA003198

PATIENT
  Age: 83 Year
  Sex: Male

DRUGS (3)
  1. BELSOMRA [Suspect]
     Active Substance: SUVOREXANT
     Indication: Sleep apnoea syndrome
     Dosage: 5 MILLIGRAM, QD
     Route: 048
     Dates: start: 20220730
  2. TRAZODONE [Suspect]
     Active Substance: TRAZODONE HYDROCHLORIDE
     Dosage: UNK
  3. SUNOSI [Suspect]
     Active Substance: SOLRIAMFETOL
     Dosage: UNK

REACTIONS (5)
  - Blood glucose decreased [Not Recovered/Not Resolved]
  - Therapeutic response unexpected [Unknown]
  - Drug effective for unapproved indication [Unknown]
  - Product label confusion [Unknown]
  - Product use complaint [Unknown]

NARRATIVE: CASE EVENT DATE: 20220730
